FAERS Safety Report 16071060 (Version 2)
Quarter: 2020Q2

REPORT INFORMATION
  Report Type: Spontaneous
  Country: US (occurrence: US)
  Receive Date: 20190314
  Receipt Date: 20200424
  Transmission Date: 20200713
  Serious: No
  Sender: FDA-Public Use
  Company Number: US-PFIZER INC-2016570447

PATIENT
  Age: 78 Year
  Sex: Male
  Weight: 105.2 kg

DRUGS (10)
  1. LISINOPRIL. [Concomitant]
     Active Substance: LISINOPRIL
     Dosage: 40 MG, 2X/DAY (ONE TABLET, TWICE DAILY)
  2. VITAMIN B [Concomitant]
     Active Substance: VITAMIN B
     Dosage: UNK UNK, WEEKLY [50000, ONE CAPSULE]
  3. COLCRYS [Concomitant]
     Active Substance: COLCHICINE
     Indication: GOUT
     Dosage: 0.6 MG, 1X/DAY
  4. PRAVASTATIN. [Concomitant]
     Active Substance: PRAVASTATIN
     Indication: BLOOD CHOLESTEROL INCREASED
     Dosage: 20 MG, 2X/DAY (HALF A TABLET TWICE A DAY)
  5. FINASTERIDE. [Concomitant]
     Active Substance: FINASTERIDE
     Dosage: 50 MG, 1X/DAY
  6. ZOLPIDEM [Concomitant]
     Active Substance: ZOLPIDEM TARTRATE
     Indication: INSOMNIA
     Dosage: 10 MG, 1X/DAY [ONCE AT NIGHT]
  7. METOPROLOL. [Concomitant]
     Active Substance: METOPROLOL
     Indication: CARDIAC DISORDER
     Dosage: 17.5 MG, DAILY [35 MG, HALF A TABLET EVERY DAY]
  8. TAMSULOSIN [Concomitant]
     Active Substance: TAMSULOSIN
     Dosage: 0.4 MG, 1X/DAY [ONE EVERY NIGHT]
  9. LYRICA [Suspect]
     Active Substance: PREGABALIN
     Indication: RHEUMATOID ARTHRITIS
     Dosage: 50 MG, 1X/DAY [EVERY NIGHT ]
     Route: 048
  10. LYRICA [Suspect]
     Active Substance: PREGABALIN
     Indication: SPINAL STENOSIS

REACTIONS (2)
  - Intentional product misuse [Unknown]
  - Joint swelling [Unknown]
